FAERS Safety Report 8360798-7 (Version None)
Quarter: 2012Q2

REPORT INFORMATION
  Report Type: 
  Country: None (occurrence: None)
  Receive Date: 20120515
  Receipt Date: 20120430
  Transmission Date: 20120825
  Serious: No
  Sender: FDA-Public Use
  Company Number: US-ASTRAZENECA-2010SE35345

PATIENT
  Age: 53 Year
  Sex: Female

DRUGS (52)
  1. METOLAZONE [Concomitant]
     Indication: SWELLING
     Dosage: 5 MG, AS NEEDED; 30 MINUTES PRIOR TO FUROSEMIDE
     Route: 048
     Dates: start: 20120412
  2. NITROSTAT [Concomitant]
     Indication: CHEST PAIN
     Dosage: EVERY 5 MINUTES
     Route: 060
     Dates: start: 20110906
  3. LYRICA [Concomitant]
     Indication: FIBROMYALGIA
     Route: 048
     Dates: start: 20100903
  4. NEXIUM [Concomitant]
     Route: 048
     Dates: start: 20110321
  5. SINGULAIR [Concomitant]
     Indication: ASTHMA
     Route: 048
  6. ALPRAZOLAM [Concomitant]
     Dosage: 1/2-1 EVERY FOUR-SIX HOURS, AS NEEDED
     Route: 048
     Dates: start: 20120216
  7. BYSTOLIC [Concomitant]
     Route: 048
     Dates: start: 20120216
  8. DEPAKOTE ER [Concomitant]
     Route: 048
     Dates: start: 20111207
  9. TRAMADOL HCL [Concomitant]
     Dosage: 2 TABLETS EVERY FOUR-SIX HOURS, AS NEEDED
     Route: 048
     Dates: start: 20110906
  10. FUROSEMIDE [Concomitant]
     Route: 048
     Dates: start: 20110628
  11. LOVAZA [Concomitant]
     Route: 048
     Dates: start: 20100218
  12. XANAX [Concomitant]
     Indication: ANXIETY
     Route: 048
  13. TEMAZEPAM [Concomitant]
     Route: 048
     Dates: start: 20120411
  14. PROVIGIL [Concomitant]
     Dosage: 1/2 TO ONE DAILY
     Route: 048
     Dates: start: 20100206
  15. HYDROCODONE BITARTRATE [Concomitant]
     Dosage: 10/500 MG Q3D
     Route: 048
  16. LORATADINE [Concomitant]
     Indication: HYPERSENSITIVITY
     Route: 048
     Dates: start: 20100316
  17. ZANAFLEX [Concomitant]
     Indication: MUSCLE SPASMS
     Dosage: 2 EVERY 4-6 HOURS, AS NEEDED
     Route: 048
     Dates: start: 20111205
  18. GLIMEPIRIDE [Concomitant]
     Route: 048
     Dates: start: 20110906
  19. TRAMADOL HCL [Concomitant]
     Dosage: 1 EVERY FOUR-SIX HOURS, AS NEEDED
     Route: 048
     Dates: start: 20110225
  20. LIDODERM [Concomitant]
     Dosage: 1-3 TO PAINFUL SKIN AREA, AS NEEDED
     Route: 065
     Dates: start: 20101021
  21. KLOR-CON M10 [Concomitant]
     Indication: MUSCLE SPASMS
     Dosage: 10MEQ,1-2 DAILY
     Route: 048
     Dates: start: 20110315
  22. ULTRAM ER [Concomitant]
     Indication: PAIN
     Route: 048
     Dates: start: 20110628
  23. FUROSEMIDE [Concomitant]
     Indication: SWELLING
     Route: 048
     Dates: start: 20110628
  24. CRESTOR [Concomitant]
     Route: 048
  25. NEXIUM [Concomitant]
     Dosage: 1 EVERY FOUR-SIX HOURS, AS NEEDED
     Route: 048
     Dates: start: 20100802
  26. MICARDIS [Concomitant]
     Indication: HYPERTENSION
     Route: 048
     Dates: start: 20120216
  27. MICARDIS [Concomitant]
     Route: 048
     Dates: start: 20120216
  28. FLUCONAZOLE [Concomitant]
     Indication: FUNGAL INFECTION
     Route: 048
     Dates: start: 20111010
  29. RANEXA [Concomitant]
     Indication: CARDIAC DISORDER
     Route: 048
  30. CRESTOR [Concomitant]
     Route: 048
     Dates: start: 20100728
  31. DEPAKOTE [Concomitant]
     Route: 048
  32. ASPIRIN [Concomitant]
     Route: 048
     Dates: start: 20100218
  33. GLYBURIDE [Concomitant]
     Indication: DIABETES MELLITUS
     Route: 048
  34. GENTAMICIN SULFATE [Concomitant]
     Dosage: 1 CREAM, TWICE A DAY, AS NEEDED
     Route: 065
     Dates: start: 20120306
  35. PROCARDIA XL [Concomitant]
     Indication: BLOOD PRESSURE ABNORMAL
     Route: 048
     Dates: start: 20120123
  36. DEPAKOTE ER [Concomitant]
     Route: 048
     Dates: start: 20111207
  37. EFFIENT [Concomitant]
     Indication: ISCHAEMIC HEART DISEASE PROPHYLAXIS
     Route: 048
  38. FOLIC ACID [Concomitant]
     Route: 048
     Dates: start: 20100218
  39. NEXIUM [Concomitant]
     Route: 048
  40. TRAMADOL HYDROCHLORIDE [Concomitant]
     Route: 048
  41. SYNTHROID [Concomitant]
     Route: 048
     Dates: start: 20110225
  42. PROMETHAZINE HCL [Concomitant]
     Indication: NAUSEA
     Dosage: EVERY FOUR-SIX HOURS, AS NEEDED
     Route: 048
     Dates: start: 20120124
  43. SELENIUM [Concomitant]
     Route: 048
     Dates: start: 20100218
  44. ALBUTEROL SULFATE [Concomitant]
     Dosage: 1 INHALATION EVERY FOUR-SIX HOURS, AS NEEDED
     Route: 055
     Dates: start: 20100316
  45. AMRIX [Concomitant]
     Indication: MUSCLE SPASMS
     Dosage: 15 MG AT EVENING AS NEEDED
     Route: 048
     Dates: start: 20110124
  46. SEROQUEL XR [Suspect]
     Indication: BIPOLAR I DISORDER
     Route: 048
     Dates: start: 20100628, end: 20100707
  47. SYMBICORT [Concomitant]
     Dosage: 160-4.5 MCG, 2 INHALATIONS TWO TIMES A DAY
     Route: 055
     Dates: start: 20100218
  48. DEXILANT [Concomitant]
     Indication: DYSPEPSIA
     Route: 048
     Dates: start: 20110912
  49. KLOR-CON M20 [Concomitant]
     Dosage: 20 MEQ, 1 TABLET DAILY
     Route: 048
     Dates: start: 20110906
  50. HYDROCODONE BITARTRATE + ACETAMINOPHEN [Concomitant]
     Dosage: 10-500 MG; 1-2 EVERY FOUR-SIX HOURS, AS NEEDED
     Route: 048
     Dates: start: 20110225
  51. IBUPROFEN [Concomitant]
     Route: 048
     Dates: start: 20100316
  52. IBUPROFEN [Concomitant]
     Route: 048
     Dates: start: 20100316

REACTIONS (10)
  - GLOSSITIS [None]
  - ORAL PAIN [None]
  - HYPOACUSIS [None]
  - DRUG HYPERSENSITIVITY [None]
  - DROOLING [None]
  - LETHARGY [None]
  - TONGUE DISORDER [None]
  - AGITATION [None]
  - MANIA [None]
  - SWELLING [None]
